FAERS Safety Report 22822181 (Version 6)
Quarter: 2023Q4

REPORT INFORMATION
  Report Type: Spontaneous
  Country: US (occurrence: US)
  Receive Date: 20230814
  Receipt Date: 20231010
  Transmission Date: 20240110
  Serious: Yes (Hospitalization, Other)
  Sender: FDA-Public Use
  Company Number: US-BoehringerIngelheim-2023-BI-255418

PATIENT
  Age: 71 Year

DRUGS (4)
  1. JARDIANCE [Suspect]
     Active Substance: EMPAGLIFLOZIN
     Indication: Type 2 diabetes mellitus
     Route: 048
     Dates: start: 202308
  2. METOPROLOL [Concomitant]
     Active Substance: METOPROLOL
     Indication: Product used for unknown indication
     Dates: end: 2023
  3. ELIQUIS [Concomitant]
     Active Substance: APIXABAN
     Indication: Product used for unknown indication
     Dates: end: 2023
  4. ENTRESTO [Concomitant]
     Active Substance: SACUBITRIL\VALSARTAN
     Indication: Product used for unknown indication
     Dates: end: 2023

REACTIONS (9)
  - Cardiac operation [Recovering/Resolving]
  - Hypotension [Unknown]
  - Loss of consciousness [Unknown]
  - Skin laceration [Recovering/Resolving]
  - Joint dislocation [Unknown]
  - Hypoacusis [Not Recovered/Not Resolved]
  - Mental impairment [Not Recovered/Not Resolved]
  - Amnesia [Recovering/Resolving]
  - Fall [Recovering/Resolving]

NARRATIVE: CASE EVENT DATE: 20230801
